FAERS Safety Report 22372494 (Version 1)
Quarter: 2023Q2

REPORT INFORMATION
  Report Type: Spontaneous
  Country: ES (occurrence: ES)
  Receive Date: 20230526
  Receipt Date: 20230526
  Transmission Date: 20230722
  Serious: Yes (Other)
  Sender: FDA-Public Use
  Company Number: None

PATIENT
  Age: 76 Year
  Sex: Male

DRUGS (7)
  1. JARDIANCE [Suspect]
     Active Substance: EMPAGLIFLOZIN
     Indication: Cardiac failure
     Route: 048
     Dates: start: 20230104, end: 20230424
  2. FUROSEMIDE [Concomitant]
     Active Substance: FUROSEMIDE
     Indication: Oedema
     Route: 048
     Dates: start: 20230104
  3. FUROSEMIDE [Concomitant]
     Active Substance: FUROSEMIDE
     Route: 048
     Dates: start: 20211111
  4. ASTUDAL 5 MG COMPRIMIDOS, 30 comprimidos [Concomitant]
     Indication: Hypertension
     Route: 048
     Dates: start: 2021
  5. ENALAPRIL [Concomitant]
     Active Substance: ENALAPRIL
     Indication: Hypertension
     Route: 048
     Dates: start: 2012
  6. JALRA 50 mg COMPRIMIDOS, 28 comprimidos [Concomitant]
     Indication: Diabetes mellitus
     Route: 048
     Dates: start: 2013, end: 20230104
  7. OMNIC OCAS 0,4 mg COMPRIMIDOS DE LIBERACION PROLONGADA RECUBIERTOS CON [Concomitant]
     Indication: Benign prostatic hyperplasia
     Route: 048
     Dates: start: 202210

REACTIONS (1)
  - Pemphigoid [Recovering/Resolving]

NARRATIVE: CASE EVENT DATE: 20230320
